FAERS Safety Report 11332920 (Version 1)
Quarter: 2015Q3

REPORT INFORMATION
  Report Type: Spontaneous
  Country: US (occurrence: US)
  Receive Date: 20150803
  Receipt Date: 20150803
  Transmission Date: 20151125
  Serious: No
  Sender: FDA-Public Use
  Company Number: US-ELI_LILLY_AND_COMPANY-US200601002038

PATIENT
  Age: 46 Year
  Sex: Female
  Weight: 112.2 kg

DRUGS (9)
  1. ZYPREXA [Suspect]
     Active Substance: OLANZAPINE
     Dosage: 5 MG, UNK
     Dates: start: 20031209
  2. SEROQUEL                                /UNK/ [Concomitant]
     Indication: PSYCHOTIC DISORDER DUE TO A GENERAL MEDICAL CONDITION
     Dosage: 100 MG, UNK
     Dates: start: 20030122
  3. MEDROL [Concomitant]
     Active Substance: METHYLPREDNISOLONE
     Dosage: 4 MG, UNK
     Dates: start: 20031013
  4. XENICAL [Concomitant]
     Active Substance: ORLISTAT
     Dosage: 120 MG, UNK
     Dates: start: 20041210
  5. ZYPREXA [Suspect]
     Active Substance: OLANZAPINE
     Dosage: 15 MG, UNK
     Dates: start: 20030919, end: 20031202
  6. SEROQUEL                                /UNK/ [Concomitant]
     Dosage: 25 MG, UNK
     Dates: start: 20041104
  7. DEPAKOTE [Concomitant]
     Active Substance: DIVALPROEX SODIUM
     Dosage: 500 MG, UNK
     Dates: start: 20030108, end: 20030513
  8. ZYPREXA [Suspect]
     Active Substance: OLANZAPINE
     Indication: BIPOLAR I DISORDER
     Dates: start: 2002
  9. DEPAKOTE [Concomitant]
     Active Substance: DIVALPROEX SODIUM
     Dosage: 250 MG, UNK
     Dates: start: 20040420

REACTIONS (3)
  - Weight increased [Unknown]
  - Type 2 diabetes mellitus [Unknown]
  - Metabolic syndrome [Unknown]

NARRATIVE: CASE EVENT DATE: 2002
